FAERS Safety Report 8343774 (Version 3)
Quarter: 2012Q4

REPORT INFORMATION
  Report Type: Report from Study
  Country: US (occurrence: US)
  Receive Date: 20120119
  Receipt Date: 20120914
  Transmission Date: 20130627
  Serious: Yes (Hospitalization)
  Sender: FDA-Public Use
  Company Number: US-UCBSA-023155

PATIENT
  Age: 34 Year
  Sex: Female
  Weight: 69.8 kg

DRUGS (12)
  1. CIMZIA [Suspect]
     Indication: CROHN^S DISEASE
     Route: 058
     Dates: start: 20101020
  2. PREDNISONE [Concomitant]
     Indication: CROHN^S DISEASE
     Dates: start: 20100922
  3. PREDNISONE [Concomitant]
     Indication: CROHN^S DISEASE
     Dates: start: 20040825, end: 2004
  4. PREDNISONE [Concomitant]
     Indication: CROHN^S DISEASE
     Dosage: FINISHED TAPER
     Dates: start: 20080702, end: 20080813
  5. PREDNISONE [Concomitant]
     Indication: CROHN^S DISEASE
     Dosage: FINISHED TAPER
     Dates: start: 20080923, end: 20081028
  6. PREDNISONE [Concomitant]
     Indication: CROHN^S DISEASE
     Dosage: FINISHED TAPER
     Dates: start: 20090119, end: 20100210
  7. PREDNISONE [Concomitant]
     Indication: CROHN^S DISEASE
     Dosage: TAPERED OFF
     Dates: start: 20090422, end: 20090902
  8. AZATHIOPRINE [Concomitant]
     Indication: CROHN^S DISEASE
     Dates: start: 20100922, end: 20111109
  9. AZATHIOPRINE [Concomitant]
     Indication: CROHN^S DISEASE
     Dates: start: 20080720, end: 20100729
  10. DILAUDID [Concomitant]
  11. LOMOTIL [Concomitant]
  12. OXYCODONE/ACETAMINOPHEN [Concomitant]
     Indication: PAIN
     Dosage: 5-325 MG
     Route: 048
     Dates: start: 20101119, end: 20101130

REACTIONS (2)
  - Clostridium difficile infection [Recovered/Resolved]
  - Crohn^s disease [Recovered/Resolved]
